FAERS Safety Report 6089525-3 (Version None)
Quarter: 2009Q1

REPORT INFORMATION
  Report Type: 
  Country: None (occurrence: None)
  Receive Date: 20090220
  Receipt Date: 20090210
  Transmission Date: 20090719
  Serious: No
  Sender: FDA-Public Use
  Company Number: 2009SP001751

PATIENT
  Age: 78 Year
  Sex: Male
  Weight: 79.3795 kg

DRUGS (5)
  1. CHLOR-TRIMETON [Suspect]
     Indication: MULTIPLE ALLERGIES
     Dosage: 12 MG; ONCE; PO
     Route: 048
     Dates: start: 20090120
  2. CHLOR-TRIMETON [Suspect]
     Indication: NASAL DISORDER
     Dosage: 12 MG; ONCE; PO
     Route: 048
     Dates: start: 20090120
  3. CHLOR-TRIMETON [Suspect]
     Indication: RESPIRATORY DISORDER
     Dosage: 12 MG; ONCE; PO
     Route: 048
     Dates: start: 20090120
  4. CHLOR-TRIMETON [Suspect]
     Indication: SEASONAL ALLERGY
     Dosage: 12 MG; ONCE; PO
     Route: 048
     Dates: start: 20090120
  5. EXCEDRIN [Concomitant]

REACTIONS (7)
  - AFFECT LABILITY [None]
  - ANGER [None]
  - DRUG EFFECT PROLONGED [None]
  - PSYCHOTIC DISORDER [None]
  - RESPIRATORY DISORDER [None]
  - SENSATION OF HEAVINESS [None]
  - SOMNOLENCE [None]
